FAERS Safety Report 8195354-7 (Version None)
Quarter: 2012Q1

REPORT INFORMATION
  Report Type: 
  Country: None (occurrence: None)
  Receive Date: 20120308
  Receipt Date: 20120228
  Transmission Date: 20120608
  Serious: Yes (Other)
  Sender: FDA-Public Use
  Company Number: US-GLAXOSMITHKLINE-A0967941A

PATIENT

DRUGS (2)
  1. TRASTUZUMAB [Concomitant]
     Indication: PRODUCT USED FOR UNKNOWN INDICATION
  2. TYKERB [Suspect]
     Indication: PRODUCT USED FOR UNKNOWN INDICATION

REACTIONS (1)
  - BRAIN OEDEMA [None]
